FAERS Safety Report 7915018-1 (Version None)
Quarter: 2011Q4

REPORT INFORMATION
  Report Type: 
  Country: None (occurrence: None)
  Receive Date: 20111115
  Receipt Date: 20111104
  Transmission Date: 20120403
  Serious: Yes (Other)
  Sender: FDA-Public Use
  Company Number: US-BAYER-2011-004030

PATIENT
  Age: 29 Year
  Sex: Female
  Weight: 84.354 kg

DRUGS (15)
  1. MEDROL [Concomitant]
     Indication: SCIATICA
     Dosage: 4 MG, UNK
     Route: 048
     Dates: start: 20030416
  2. VICODIN [Concomitant]
     Indication: SCIATICA
     Dosage: UNK
     Route: 048
     Dates: start: 20030416
  3. VIOXX [Concomitant]
     Indication: LUMBAR RADICULOPATHY
     Dosage: 25 MG, UNK
     Route: 048
     Dates: start: 20030430
  4. YAZ [Suspect]
     Indication: PREMENSTRUAL SYNDROME
  5. YAZ [Suspect]
  6. YASMIN [Suspect]
     Indication: PREMENSTRUAL SYNDROME
  7. FLEXERIL [Concomitant]
     Dosage: 10 MG, UNK
     Route: 048
     Dates: start: 20031003
  8. YAZ [Suspect]
     Indication: CONTRACEPTION
     Dosage: UNK
     Dates: start: 20070605, end: 20071005
  9. PERCOCET [Concomitant]
     Indication: LUMBAR RADICULOPATHY
     Dosage: UNK
     Route: 048
     Dates: start: 20030430
  10. MOTRIN [Concomitant]
     Dosage: 800 MG, UNK
     Route: 048
     Dates: start: 20031003
  11. AUGMENTIN [Concomitant]
     Indication: VULVAL ABSCESS
     Dosage: UNK
     Route: 048
     Dates: start: 20070605
  12. YASMIN [Suspect]
     Indication: CONTRACEPTION
     Dosage: UNK
     Dates: start: 20021010, end: 20040301
  13. YASMIN [Suspect]
  14. YASMIN [Suspect]
     Indication: DYSMENORRHOEA
  15. CELEBREX [Concomitant]
     Dosage: UNK
     Route: 048
     Dates: start: 20050203

REACTIONS (5)
  - PULMONARY EMBOLISM [None]
  - PANIC ATTACK [None]
  - PAIN IN EXTREMITY [None]
  - DEEP VEIN THROMBOSIS [None]
  - EMOTIONAL DISTRESS [None]
